FAERS Safety Report 8904060 (Version 1)
Quarter: 2012Q4

REPORT INFORMATION
  Report Type: Report from Study
  Country: ES (occurrence: ES)
  Receive Date: 20121112
  Receipt Date: 20121112
  Transmission Date: 20130627
  Serious: Yes (Other)
  Sender: FDA-Public Use
  Company Number: ES-INCYTE CORPORATION-2012IN002232

PATIENT
  Age: 59 Year
  Sex: Female

DRUGS (1)
  1. INCB018424 [Suspect]
     Indication: MYELOFIBROSIS
     Dosage: 5 mg, q12H
     Route: 048
     Dates: start: 20120720

REACTIONS (1)
  - Polyneuropathy [Not Recovered/Not Resolved]
